FAERS Safety Report 18673369 (Version 3)
Quarter: 2021Q1

REPORT INFORMATION
  Report Type: Spontaneous
  Country: US (occurrence: US)
  Receive Date: 20201229
  Receipt Date: 20210325
  Transmission Date: 20210419
  Serious: Yes (Other)
  Sender: FDA-Public Use
  Company Number: US-BRISTOL-MYERS SQUIBB COMPANY-BMS-2020-111512

PATIENT
  Sex: Male
  Weight: 87.08 kg

DRUGS (1)
  1. ELIQUIS [Suspect]
     Active Substance: APIXABAN
     Indication: CEREBROVASCULAR ACCIDENT PROPHYLAXIS
     Dosage: 5 MILLIGRAM, BID
     Route: 048
     Dates: start: 20200909, end: 20201223

REACTIONS (7)
  - Epistaxis [Unknown]
  - Faeces discoloured [Unknown]
  - Treatment noncompliance [Unknown]
  - Fatigue [Unknown]
  - Heart rate increased [Unknown]
  - Haematochezia [Unknown]
  - Gait disturbance [Unknown]
